FAERS Safety Report 13776416 (Version 1)
Quarter: 2017Q3

REPORT INFORMATION
  Report Type: Spontaneous
  Country: GB (occurrence: GB)
  Receive Date: 20170720
  Receipt Date: 20170720
  Transmission Date: 20171127
  Serious: Yes (Life-Threatening, Hospitalization, Disabling)
  Sender: FDA-Public Use
  Company Number: GB-PFIZER INC-2055340

PATIENT
  Age: 72 Year
  Sex: Female
  Weight: 70 kg

DRUGS (10)
  1. YENTREVE [Concomitant]
     Active Substance: DULOXETINE HYDROCHLORIDE
     Indication: PRODUCT USED FOR UNKNOWN INDICATION
     Dosage: 20 MG, FREQ: 2 DAY; INTERVAL: 1
     Route: 048
     Dates: start: 20111128
  2. SIMVASTATIN. [Concomitant]
     Active Substance: SIMVASTATIN
     Indication: PRODUCT USED FOR UNKNOWN INDICATION
     Dosage: 40 MG, NOCTE-AT NIGHT, FREQ: 1 DAY; INERVAL: 1
     Route: 048
     Dates: start: 20081120
  3. PREDNISOLONE. [Concomitant]
     Active Substance: PREDNISOLONE
     Indication: RHEUMATOID ARTHRITIS
     Dosage: VARIABLE
     Route: 048
     Dates: start: 20110304, end: 20130821
  4. METHOTREXATE SODIUM. [Suspect]
     Active Substance: METHOTREXATE SODIUM
     Indication: RHEUMATOID ARTHRITIS
     Dosage: 15 MG, FREQ: 1 WEEK; INTERVAL: 1
     Route: 048
     Dates: start: 20130328, end: 20130821
  5. PROPRANOLOL [Concomitant]
     Active Substance: PROPRANOLOL HYDROCHLORIDE
     Indication: PRODUCT USED FOR UNKNOWN INDICATION
     Dosage: 10 MG, FREQ: 3 DAY; INTERVAL: 1
     Route: 048
     Dates: start: 20081120
  6. HYDROXYCHLOROQUINE [Concomitant]
     Active Substance: HYDROXYCHLOROQUINE
     Indication: RHEUMATOID ARTHRITIS
     Dosage: 200 MG, FREQ: 2 DAY; INTERVAL: 1
     Route: 048
     Dates: start: 20130417
  7. ALENDRONIC ACID [Concomitant]
     Active Substance: ALENDRONIC ACID
     Indication: BONE DISORDER
     Dosage: 70 MG, FREQ: 1 WEEK; INTERVAL: 1
     Route: 048
     Dates: start: 20130417
  8. COCODAMOL [Concomitant]
     Active Substance: ACETAMINOPHEN\CODEINE PHOSPHATE
     Indication: PRODUCT USED FOR UNKNOWN INDICATION
     Dosage: FREQ: AS NEEDED
     Route: 048
     Dates: start: 20130320
  9. METFORMIN [Concomitant]
     Active Substance: METFORMIN HYDROCHLORIDE
     Indication: DIABETES MELLITUS
     Dosage: 500 MG, FREQ: 3 DAY; INTERVAL: 1
     Route: 048
     Dates: start: 20130417
  10. CALCICHEW D3 [Concomitant]
     Active Substance: CALCIUM\CHOLECALCIFEROL
     Indication: BONE DISORDER
     Dosage: 1 DF, FREQ: 2 DAY; INTERVAL: 1
     Route: 048
     Dates: start: 20110304

REACTIONS (1)
  - Tonsil cancer [Recovering/Resolving]

NARRATIVE: CASE EVENT DATE: 20130724
